FAERS Safety Report 10071282 (Version 2)
Quarter: 2014Q2

REPORT INFORMATION
  Report Type: Spontaneous
  Country: US (occurrence: US)
  Receive Date: 20140410
  Receipt Date: 20140509
  Transmission Date: 20141212
  Serious: Yes (Other)
  Sender: FDA-Public Use
  Company Number: US-TARO-2014P1003024

PATIENT
  Age: 55 Year
  Sex: Female
  Weight: 52.16 kg

DRUGS (27)
  1. WARFARIN SODIUM TABLETS USP 1MG [Suspect]
     Indication: DEEP VEIN THROMBOSIS
     Route: 048
     Dates: start: 2012
  2. WARFARIN SODIUM TABLETS USP 1MG [Suspect]
     Indication: DEEP VEIN THROMBOSIS
     Route: 048
     Dates: end: 201403
  3. WARFARIN SODIUM TABLETS USP 1MG [Suspect]
     Indication: DEEP VEIN THROMBOSIS
     Route: 048
     Dates: end: 201403
  4. WARFARIN SODIUM TABLETS USP 1MG [Suspect]
     Indication: DEEP VEIN THROMBOSIS
     Route: 048
     Dates: start: 201403, end: 20140402
  5. LANTUS [Concomitant]
  6. REGULAR INSULIN [Concomitant]
  7. ASPIRIN [Concomitant]
     Dates: end: 201404
  8. PLAVIX [Concomitant]
     Dates: start: 201311
  9. COREG [Concomitant]
  10. CARBAMAZEPINE [Concomitant]
  11. ACETAMINOPHEN [Concomitant]
  12. ASCORBIC ACID [Concomitant]
  13. B COMPLEX + C [Concomitant]
  14. AZITHROMYCIN [Concomitant]
  15. ATORVASTATIN [Concomitant]
  16. SYNTHROID [Concomitant]
  17. PROTONIX [Concomitant]
  18. PREDNISONE [Concomitant]
  19. RISPERDAL [Concomitant]
  20. BACTRIM DS [Concomitant]
  21. PROGRAF [Concomitant]
  22. VALCYTE [Concomitant]
  23. ZOFRAN [Concomitant]
  24. ZOFRAN [Concomitant]
  25. IMODIUM [Concomitant]
  26. RENVELA [Concomitant]
  27. CELLCEPT [Concomitant]
     Dates: end: 201402

REACTIONS (9)
  - International normalised ratio increased [Unknown]
  - Prothrombin time prolonged [Unknown]
  - Skin ulcer [Not Recovered/Not Resolved]
  - Skin ulcer haemorrhage [Unknown]
  - Stress [Unknown]
  - Product quality issue [Unknown]
  - Blood glucose increased [Unknown]
  - Neoplasm malignant [Not Recovered/Not Resolved]
  - Incoherent [Unknown]
